FAERS Safety Report 6126690-3 (Version None)
Quarter: 2009Q1

REPORT INFORMATION
  Report Type: 
  Country: None (occurrence: None)
  Receive Date: 20090320
  Receipt Date: 20090313
  Transmission Date: 20090719
  Serious: Yes (Other)
  Sender: FDA-Public Use
  Company Number: US-SANOFI-SYNTHELABO-A03200901154

PATIENT
  Age: 85 Year
  Sex: Female

DRUGS (1)
  1. PLAVIX [Suspect]
     Indication: THROMBOSIS
     Route: 048
     Dates: start: 20040101, end: 20070101

REACTIONS (4)
  - DRUG INEFFECTIVE [None]
  - JUGULAR VEIN THROMBOSIS [None]
  - PERIPHERAL VASCULAR DISORDER [None]
  - SUBCLAVIAN VEIN THROMBOSIS [None]
